FAERS Safety Report 25575552 (Version 1)
Quarter: 2025Q3

REPORT INFORMATION
  Report Type: Spontaneous
  Country: EU (occurrence: EU)
  Receive Date: 20250718
  Receipt Date: 20250718
  Transmission Date: 20251021
  Serious: Yes (Death)
  Sender: NOVARTIS
  Company Number: EU-002147023-NVSC2025FR114114

PATIENT
  Age: 79 Year
  Sex: Female

DRUGS (1)
  1. KISQALI [Suspect]
     Active Substance: RIBOCICLIB SUCCINATE
     Indication: Breast cancer
     Dosage: 600 MG QD (3X DAILY FOR 21 DAYS)
     Route: 065
     Dates: start: 20240416

REACTIONS (2)
  - Breast cancer [Fatal]
  - Malignant neoplasm progression [Fatal]
